FAERS Safety Report 13256199 (Version 1)
Quarter: 2017Q1

REPORT INFORMATION
  Report Type: Spontaneous
  Country: DE (occurrence: DE)
  Receive Date: 20170221
  Receipt Date: 20170221
  Transmission Date: 20170428
  Serious: Yes (Life-Threatening, Hospitalization, Other)
  Sender: FDA-Public Use
  Company Number: DE-ELI_LILLY_AND_COMPANY-DE201702005786

PATIENT
  Age: 53 Year
  Sex: Male
  Weight: 88 kg

DRUGS (1)
  1. GEMCITABINE HYDROCHLORIDE. [Suspect]
     Active Substance: GEMCITABINE HYDROCHLORIDE
     Indication: PANCREATIC CARCINOMA
     Dosage: 1600 MG, UNKNOWN
     Route: 042
     Dates: start: 20160801, end: 20170116

REACTIONS (2)
  - Haemolytic anaemia [Not Recovered/Not Resolved]
  - Haemolytic uraemic syndrome [Not Recovered/Not Resolved]

NARRATIVE: CASE EVENT DATE: 20170123
